FAERS Safety Report 7202625-7 (Version None)
Quarter: 2010Q4

REPORT INFORMATION
  Report Type: 
  Country: None (occurrence: None)
  Receive Date: 20101206
  Receipt Date: 20101126
  Transmission Date: 20110411
  Serious: Yes (Hospitalization, Other)
  Sender: FDA-Public Use
  Company Number: CA-145107

PATIENT
  Age: 29 Year
  Sex: Male
  Weight: 45 kg

DRUGS (1)
  1. WINRHO [Suspect]
     Dosage: (5000 ?G INTRAVENOUS)
     Route: 042

REACTIONS (9)
  - BACK PAIN [None]
  - BODY TEMPERATURE INCREASED [None]
  - CHILLS [None]
  - COUGH [None]
  - DIZZINESS [None]
  - DYSPNOEA [None]
  - HYPERHIDROSIS [None]
  - OVERDOSE [None]
  - TACHYCARDIA [None]
